FAERS Safety Report 12589729 (Version 3)
Quarter: 2019Q2

REPORT INFORMATION
  Report Type: Report from Study
  Country: US (occurrence: US)
  Receive Date: 20160725
  Receipt Date: 20190530
  Transmission Date: 20190711
  Serious: Yes (Hospitalization)
  Sender: FDA-Public Use
  Company Number: US-PFIZER INC-2016340849

PATIENT
  Age: 59 Year
  Sex: Male
  Weight: 105 kg

DRUGS (8)
  1. OXYCODONE [Concomitant]
     Active Substance: OXYCODONE
     Indication: PAIN
     Dosage: UNK
     Dates: start: 20151110
  2. MORPHINE [Concomitant]
     Active Substance: MORPHINE
     Indication: PAIN
     Dosage: UNK
     Dates: start: 20151110
  3. ATIVAN [Concomitant]
     Active Substance: LORAZEPAM
     Indication: ANXIETY
     Dosage: UNK
     Dates: start: 20150623
  4. CRIZOTINIB [Suspect]
     Active Substance: CRIZOTINIB
     Indication: RENAL CELL CARCINOMA
     Dosage: 250 MG, 2X/DAY (BID)
     Route: 048
     Dates: start: 20150303, end: 20160710
  5. AXITINIB [Suspect]
     Active Substance: AXITINIB
     Indication: RENAL CELL CARCINOMA
     Dosage: 5 MG, 2X/DAY (BID)
     Route: 048
     Dates: start: 20150224, end: 20160710
  6. NORVASC [Concomitant]
     Active Substance: AMLODIPINE BESYLATE
     Indication: HYPERTENSION
     Dosage: UNK
     Dates: start: 2010
  7. VENLAFAXINE [Concomitant]
     Active Substance: VENLAFAXINE HYDROCHLORIDE
     Indication: ANXIETY
     Dosage: UNK
     Dates: start: 20150818
  8. ONDANSAN [Concomitant]
     Indication: NAUSEA
     Dosage: UNK
     Dates: start: 20150904

REACTIONS (2)
  - Embolism [Recovered/Resolved]
  - Syncope [Recovered/Resolved]

NARRATIVE: CASE EVENT DATE: 20160710
